FAERS Safety Report 14358450 (Version 2)
Quarter: 2020Q1

REPORT INFORMATION
  Report Type: Spontaneous
  Country: US (occurrence: US)
  Receive Date: 20180105
  Receipt Date: 20200110
  Transmission Date: 20200409
  Serious: No
  Sender: FDA-Public Use
  Company Number: US-SA-2017SA225540

PATIENT
  Age: 80 Year
  Sex: Female
  Weight: 79.3 kg

DRUGS (11)
  1. MEFENAMIC ACID. [Concomitant]
     Active Substance: MEFENAMIC ACID
  2. ACETYLSALICYLIC ACID [Concomitant]
     Active Substance: ASPIRIN
  3. LIPITOR [Concomitant]
     Active Substance: ATORVASTATIN CALCIUM
  4. CHLORDIAZEPOXIDE HYDROCHLORIDE;CLIDINIUM BROMIDE [Concomitant]
  5. LOSARTAN POTASSIUM. [Concomitant]
     Active Substance: LOSARTAN POTASSIUM
  6. DUPIXENT [Suspect]
     Active Substance: DUPILUMAB
     Indication: DERMATITIS ATOPIC
     Dosage: 300 MG,QOW
     Route: 058
     Dates: start: 20170816
  7. PRESERVISION AREDS 2 [Concomitant]
     Active Substance: MINERALS\VITAMINS
  8. PIROXICAM. [Concomitant]
     Active Substance: PIROXICAM
  9. AMBIEN [Concomitant]
     Active Substance: ZOLPIDEM TARTRATE
  10. RANITIDINE. [Concomitant]
     Active Substance: RANITIDINE
  11. METFORMIN [Concomitant]
     Active Substance: METFORMIN HYDROCHLORIDE
     Dosage: UNK, UNK

REACTIONS (3)
  - Diarrhoea [Recovered/Resolved]
  - Therapeutic response decreased [Unknown]
  - Flatulence [Recovered/Resolved]

NARRATIVE: CASE EVENT DATE: 201708
